FAERS Safety Report 7210134-4 (Version None)
Quarter: 2011Q1

REPORT INFORMATION
  Report Type: 
  Country: None (occurrence: None)
  Receive Date: 20110105
  Receipt Date: 20101224
  Transmission Date: 20110831
  Serious: Yes (Other)
  Sender: FDA-Public Use
  Company Number: US-BRISTOL-MYERS SQUIBB COMPANY-15442148

PATIENT
  Age: 70 Year
  Sex: Male

DRUGS (1)
  1. MITOMYCIN [Suspect]
     Indication: BLADDER TRANSITIONAL CELL CARCINOMA
     Dosage: 7 WKLY INTRAVESICAL INSTILLATIONS 40MG IN 40ML IN NORMAL SALINE, AGAIN SAME DOSE GIVEN (7WKLY)INJ.
     Route: 043

REACTIONS (1)
  - EOSINOPHILIC CYSTITIS [None]
